FAERS Safety Report 18106670 (Version 2)
Quarter: 2020Q3

REPORT INFORMATION
  Report Type: Spontaneous
  Country: JP (occurrence: JP)
  Receive Date: 20200803
  Receipt Date: 20200901
  Transmission Date: 20201103
  Serious: Yes (Hospitalization, Other)
  Sender: FDA-Public Use
  Company Number: JP-JNJFOC-20200741288

PATIENT
  Age: 85 Year
  Sex: Male

DRUGS (7)
  1. STROCAIN                           /00130301/ [Concomitant]
     Indication: PRODUCT USED FOR UNKNOWN INDICATION
     Route: 048
     Dates: start: 20200717
  2. REMINYL [Suspect]
     Active Substance: GALANTAMINE
     Route: 048
     Dates: start: 20200720, end: 20200815
  3. REMINYL [Suspect]
     Active Substance: GALANTAMINE
     Indication: DEMENTIA
     Route: 048
     Dates: end: 20200711
  4. MEXITIL [Concomitant]
     Active Substance: MEXILETINE HYDROCHLORIDE
     Route: 048
     Dates: start: 20200717
  5. REMINYL [Suspect]
     Active Substance: GALANTAMINE
     Route: 048
     Dates: start: 20200816
  6. OMEPRAZOLE. [Concomitant]
     Active Substance: OMEPRAZOLE
     Indication: GASTROINTESTINAL DISORDER PROPHYLAXIS
     Route: 048
     Dates: start: 20200717
  7. MEXITIL [Concomitant]
     Active Substance: MEXILETINE HYDROCHLORIDE
     Indication: ARRHYTHMIA
     Dosage: DOSE UNKNOWN
     Route: 048
     Dates: end: 20200711

REACTIONS (5)
  - Product prescribing error [Unknown]
  - Cholangitis [Recovering/Resolving]
  - Off label use [Unknown]
  - Arrhythmia [Unknown]
  - Extrapyramidal disorder [Recovered/Resolved]

NARRATIVE: CASE EVENT DATE: 20200711
